FAERS Safety Report 4949740-6 (Version None)
Quarter: 2006Q1

REPORT INFORMATION
  Report Type: 
  Country: None (occurrence: None)
  Receive Date: 20060321
  Receipt Date: 20050315
  Transmission Date: 20060701
  Serious: Yes (Hospitalization, Other)
  Sender: FDA-Public Use
  Company Number: US-MERCK-0503USA03226

PATIENT
  Age: 47 Year
  Sex: Female
  Weight: 91 kg

DRUGS (7)
  1. VIOXX [Suspect]
     Indication: PAIN
     Route: 048
     Dates: start: 20010101, end: 20040101
  2. LEVAQUIN [Concomitant]
     Route: 065
  3. FLAGYL [Concomitant]
     Route: 065
  4. BUSPAR [Concomitant]
     Route: 065
  5. CLONIDINE [Concomitant]
     Route: 065
  6. KLONOPIN [Concomitant]
     Route: 065
  7. NEUTRA-PHOS [Concomitant]
     Route: 065

REACTIONS (13)
  - AORTIC VALVE INCOMPETENCE [None]
  - CARDIAC FAILURE [None]
  - CARDIAC FAILURE CONGESTIVE [None]
  - CEREBROVASCULAR ACCIDENT [None]
  - CHEST PAIN [None]
  - HEPATOCELLULAR DAMAGE [None]
  - INJURY [None]
  - MITRAL VALVE INCOMPETENCE [None]
  - MYOCARDIAL INFARCTION [None]
  - RENAL DISORDER [None]
  - THROMBOSIS [None]
  - TRICUSPID VALVE INCOMPETENCE [None]
  - ULCER [None]
